FAERS Safety Report 6501986-1 (Version None)
Quarter: 2009Q4

REPORT INFORMATION
  Report Type: 
  Country: None (occurrence: None)
  Receive Date: 20091216
  Receipt Date: 20090923
  Transmission Date: 20100525
  Serious: Yes (Other)
  Sender: FDA-Public Use
  Company Number: US-ASTRAZENECA-2009SE31296

PATIENT
  Age: 26 Year
  Sex: Male

DRUGS (2)
  1. BUPIVACAINE [Suspect]
     Indication: ARTHROSCOPY
     Dosage: AT LEAST 20 CC
     Route: 014
  2. BUPIVACAINE [Suspect]
     Dosage: 250-300 ML
     Route: 014

REACTIONS (1)
  - CHONDROLYSIS [None]
